FAERS Safety Report 7704775-5 (Version None)
Quarter: 2011Q3

REPORT INFORMATION
  Report Type: 
  Country: None (occurrence: None)
  Receive Date: 20110823
  Receipt Date: 20110818
  Transmission Date: 20111222
  Serious: Yes (Hospitalization)
  Sender: FDA-Public Use
  Company Number: TW-ABBOTT-11P-153-0847618-00

PATIENT
  Sex: Male
  Weight: 60 kg

DRUGS (2)
  1. HUMIRA [Suspect]
     Indication: PRODUCT USED FOR UNKNOWN INDICATION
     Route: 058
     Dates: start: 20101105, end: 20110615
  2. HUMIRA [Suspect]
     Route: 058
     Dates: start: 20110615, end: 20110713

REACTIONS (7)
  - CHRONIC HEPATIC FAILURE [None]
  - HEPATITIS [None]
  - CHOLELITHIASIS [None]
  - CHOLANGITIS [None]
  - LIVER TRANSPLANT [None]
  - JAUNDICE [None]
  - HEPATITIS FULMINANT [None]
